FAERS Safety Report 12893919 (Version 4)
Quarter: 2016Q4

REPORT INFORMATION
  Report Type: Report from Study
  Country: TW (occurrence: TW)
  Receive Date: 20161028
  Receipt Date: 20161227
  Transmission Date: 20170207
  Serious: Yes (Hospitalization)
  Sender: FDA-Public Use
  Company Number: US-SA-2016SA193773

PATIENT
  Age: 59 Year
  Sex: Female
  Weight: 53.4 kg

DRUGS (11)
  1. TAXOTERE [Suspect]
     Active Substance: DOCETAXEL
     Indication: RENAL CANCER
     Route: 065
     Dates: start: 20160926
  2. INVESTIGATIONAL DRUG [Suspect]
     Active Substance: INVESTIGATIONAL PRODUCT
     Indication: RENAL CANCER
     Route: 065
     Dates: start: 20160613
  3. ELTROXIN [Concomitant]
     Active Substance: LEVOTHYROXINE
     Indication: HYPOTHYROIDISM
     Dates: start: 1995
  4. PREDNISOLONE. [Concomitant]
     Active Substance: PREDNISOLONE
     Dates: start: 20160613
  5. FOLIC ACID. [Concomitant]
     Active Substance: FOLIC ACID
     Dates: start: 20160613
  6. ZANTAC [Concomitant]
     Active Substance: RANITIDINE HYDROCHLORIDE
     Dates: start: 20160613
  7. APO-FOLIC [Concomitant]
  8. MAG-OX [Concomitant]
     Active Substance: MAGNESIUM OXIDE
     Dates: start: 20160613
  9. DEXAMETHASONE. [Concomitant]
     Active Substance: DEXAMETHASONE
     Dates: start: 20160613
  10. PRIMPERAN [Concomitant]
     Active Substance: METOCLOPRAMIDE HYDROCHLORIDE
     Dates: start: 20160613
  11. CHLORPHENIRAMINE. [Concomitant]
     Active Substance: CHLORPHENIRAMINE
     Dates: start: 20160613

REACTIONS (3)
  - Tooth disorder [Recovered/Resolved]
  - Dermatitis [Recovering/Resolving]
  - Gingivitis [Recovered/Resolved]

NARRATIVE: CASE EVENT DATE: 20161005
